FAERS Safety Report 9605253 (Version 2)
Quarter: 2013Q4

REPORT INFORMATION
  Report Type: Spontaneous
  Country: JP (occurrence: JP)
  Receive Date: 20131008
  Receipt Date: 20131119
  Transmission Date: 20140711
  Serious: Yes (Life-Threatening, Hospitalization)
  Sender: FDA-Public Use
  Company Number: JP-GLAXOSMITHKLINE-B0911111A

PATIENT
  Age: 78 Year
  Sex: Female
  Weight: 50 kg

DRUGS (7)
  1. VALTREX [Suspect]
     Indication: HERPES ZOSTER
     Dosage: 1000MG THREE TIMES PER DAY
     Route: 048
     Dates: start: 20130718, end: 20130720
  2. BAYASPIRIN [Concomitant]
     Dosage: 100MG PER DAY
     Route: 048
  3. CO-DIO [Concomitant]
     Dosage: 1IUAX PER DAY
     Route: 048
  4. LIPITOR [Concomitant]
     Dosage: 10MG PER DAY
     Route: 048
  5. AMLODIN [Concomitant]
     Dosage: 5MG PER DAY
     Route: 048
  6. WARFARIN [Concomitant]
     Dosage: 3MG PER DAY
     Route: 048
  7. VASOLAN [Concomitant]
     Dosage: 80MG TWICE PER DAY
     Route: 048

REACTIONS (7)
  - Toxic encephalopathy [Recovered/Resolved]
  - Nephropathy [Recovering/Resolving]
  - Renal disorder [Recovering/Resolving]
  - Gait disturbance [Recovering/Resolving]
  - Dysarthria [Recovering/Resolving]
  - Disorientation [Recovering/Resolving]
  - Restlessness [Unknown]
